FAERS Safety Report 9009812 (Version 2)
Quarter: 2013Q1

REPORT INFORMATION
  Report Type: Spontaneous
  Country: US (occurrence: US)
  Receive Date: 20130110
  Receipt Date: 20130123
  Transmission Date: 20140127
  Serious: No
  Sender: FDA-Public Use
  Company Number: US-009507513-1301USA004439

PATIENT
  Age: 60 Year
  Sex: Male
  Weight: 77.98 kg

DRUGS (2)
  1. CLARITIN REDITABS [Suspect]
     Indication: RHINORRHOEA
     Dosage: 10 MG, ONCE
     Route: 048
     Dates: start: 20121220, end: 20121220
  2. CLARITIN REDITABS [Suspect]
     Indication: MEDICAL OBSERVATION

REACTIONS (1)
  - Drug ineffective [Unknown]
